FAERS Safety Report 11798461 (Version 3)
Quarter: 2016Q2

REPORT INFORMATION
  Report Type: Spontaneous
  Country: SE (occurrence: SE)
  Receive Date: 20151203
  Receipt Date: 20160429
  Transmission Date: 20160815
  Serious: Yes (Life-Threatening)
  Sender: FDA-Public Use
  Company Number: SE-B.I. PHARMACEUTICALS,INC./RIDGEFIELD-2015-BI-66985SW

PATIENT
  Age: 29 Year
  Sex: Male

DRUGS (1)
  1. SIFROL [Suspect]
     Active Substance: PRAMIPEXOLE
     Indication: PARKINSON^S DISEASE
     Dosage: FORMULATION: SLOW RELEASE; 1.05
     Route: 065
     Dates: start: 2014, end: 20140401

REACTIONS (5)
  - Personality change [Unknown]
  - Suicide attempt [Unknown]
  - Compulsive shopping [Unknown]
  - Aggression [Unknown]
  - Gambling disorder [Unknown]

NARRATIVE: CASE EVENT DATE: 201403
